FAERS Safety Report 26022970 (Version 2)
Quarter: 2025Q4

REPORT INFORMATION
  Report Type: Spontaneous
  Country: US (occurrence: US)
  Receive Date: 20251110
  Receipt Date: 20251212
  Transmission Date: 20260117
  Serious: No
  Sender: BRISTOL-MYERS SQUIBB COMPANY
  Company Number: US-BRISTOL-MYERS SQUIBB COMPANY-2025-152258

PATIENT
  Age: 73 Year
  Sex: Female

DRUGS (1)
  1. THALOMID [Suspect]
     Active Substance: THALIDOMIDE
     Indication: Lepromatous leprosy
     Route: 048

REACTIONS (6)
  - Fatigue [Unknown]
  - Headache [Unknown]
  - Product dose omission issue [Unknown]
  - Therapy interrupted [Unknown]
  - Constipation [Unknown]
  - Abdominal pain [Unknown]
